FAERS Safety Report 5430878-4 (Version None)
Quarter: 2007Q3

REPORT INFORMATION
  Report Type: 
  Country: None (occurrence: None)
  Receive Date: 20070830
  Receipt Date: 20070104
  Transmission Date: 20080115
  Serious: No
  Sender: FDA-Public Use
  Company Number: A0634140A

PATIENT
  Sex: Female

DRUGS (7)
  1. WELLBUTRIN XL [Suspect]
     Indication: DEPRESSION
     Dosage: 450MG PER DAY
     Route: 048
  2. DEPAKOTE [Concomitant]
  3. ABILIFY [Concomitant]
  4. ATENOLOL [Concomitant]
  5. LIPITOR [Concomitant]
  6. LORAZEPAM [Concomitant]
  7. BENZTROPINE [Concomitant]

REACTIONS (1)
  - INTRAOCULAR PRESSURE INCREASED [None]
